FAERS Safety Report 16508467 (Version 1)
Quarter: 2019Q3

REPORT INFORMATION
  Report Type: Spontaneous
  Country: US (occurrence: US)
  Receive Date: 20190702
  Receipt Date: 20190702
  Transmission Date: 20191004
  Serious: Yes (Death, Other)
  Sender: FDA-Public Use
  Company Number: US-ROCHE-2286130

PATIENT
  Age: 61 Year
  Sex: Female

DRUGS (4)
  1. CAPECITABINE. [Suspect]
     Active Substance: CAPECITABINE
     Dosage: TWICE A DAY ON A 14 DAY EVERY 5 WEEK SCHEDULE.
     Route: 065
  2. EXEMESTANE. [Concomitant]
     Active Substance: EXEMESTANE
  3. CAPECITABINE. [Suspect]
     Active Substance: CAPECITABINE
     Indication: BREAST CANCER METASTATIC
     Dosage: TWICE A DAY ON A 14 DAY EVERY 21 DAY SCHEDULE.
     Route: 065
  4. GEMCITABINE. [Concomitant]
     Active Substance: GEMCITABINE

REACTIONS (5)
  - Fatigue [Recovering/Resolving]
  - Cytopenia [Unknown]
  - Alopecia [Recovering/Resolving]
  - Palmar-plantar erythrodysaesthesia syndrome [Recovering/Resolving]
  - Stomatitis [Recovering/Resolving]
